FAERS Safety Report 7270698-1 (Version None)
Quarter: 2011Q1

REPORT INFORMATION
  Report Type: 
  Country: None (occurrence: None)
  Receive Date: 20110202
  Receipt Date: 20110125
  Transmission Date: 20110831
  Serious: Yes (Death)
  Sender: FDA-Public Use
  Company Number: B0696232A

PATIENT
  Sex: Female

DRUGS (1)
  1. REVOLADE [Suspect]
     Indication: IDIOPATHIC THROMBOCYTOPENIC PURPURA
     Route: 048
     Dates: start: 20101213, end: 20110101

REACTIONS (2)
  - IDIOPATHIC THROMBOCYTOPENIC PURPURA [None]
  - SUBARACHNOID HAEMORRHAGE [None]
